FAERS Safety Report 21202997 (Version 1)
Quarter: 2022Q3

REPORT INFORMATION
  Report Type: Spontaneous
  Country: US (occurrence: US)
  Receive Date: 20220811
  Receipt Date: 20220811
  Transmission Date: 20221027
  Serious: No
  Sender: FDA-Public Use
  Company Number: US-OTSUKA-2021_030973

PATIENT
  Age: 12 Year
  Sex: Female

DRUGS (1)
  1. REXULTI [Suspect]
     Active Substance: BREXPIPRAZOLE
     Indication: Anxiety
     Dosage: UNK
     Route: 065

REACTIONS (2)
  - Product administered to patient of inappropriate age [Unknown]
  - Product use in unapproved indication [Unknown]
